FAERS Safety Report 8329937-8 (Version None)
Quarter: 2012Q2

REPORT INFORMATION
  Report Type: 
  Country: None (occurrence: None)
  Receive Date: 20120502
  Receipt Date: 20120424
  Transmission Date: 20120825
  Serious: Yes (Life-Threatening, Hospitalization)
  Sender: FDA-Public Use
  Company Number: JP-JNJFOC-20111202003

PATIENT
  Sex: Male
  Weight: 74 kg

DRUGS (22)
  1. LASIX [Concomitant]
     Route: 048
  2. INSULIN [Concomitant]
     Route: 058
  3. CYCLOSPORINE [Concomitant]
     Indication: PSORIASIS
     Dates: start: 20110706, end: 20110805
  4. GLIMEPIRIDE [Concomitant]
     Route: 048
  5. SENNOSIDE [Concomitant]
     Route: 048
  6. NEUROTROPIN [Concomitant]
     Route: 048
  7. MECOBALAMIN [Concomitant]
     Route: 048
  8. HEPARIN [Concomitant]
     Indication: PSORIASIS
     Route: 061
  9. USTEKINUMAB [Suspect]
     Indication: PSORIASIS
     Route: 058
     Dates: start: 20110803, end: 20110803
  10. PREDNISOLONE [Suspect]
     Indication: PRODUCT USED FOR UNKNOWN INDICATION
     Route: 050
     Dates: start: 20111014, end: 20111027
  11. PREDNISOLONE [Suspect]
     Route: 048
     Dates: start: 20111028, end: 20111228
  12. MICARDIS [Concomitant]
     Route: 048
  13. REBAMIPIDE [Concomitant]
     Route: 048
  14. BETAMETHASONE BUTYRATE [Concomitant]
     Indication: PSORIASIS
     Route: 061
  15. KERATINAMIN [Concomitant]
     Indication: PSORIASIS
     Route: 061
  16. LEVEMIR [Concomitant]
     Route: 058
  17. ALLEGRA [Concomitant]
     Indication: PSORIASIS
     Route: 048
  18. LIDOMEX [Concomitant]
     Indication: PSORIASIS
     Route: 061
  19. BROTIZOLAM [Concomitant]
     Route: 048
  20. USTEKINUMAB [Suspect]
     Route: 058
     Dates: start: 20110706, end: 20110706
  21. HUMULIN INSULIN [Concomitant]
     Route: 058
  22. HYDROCORTISONE BUTYRATE [Concomitant]
     Indication: PSORIASIS
     Route: 061

REACTIONS (3)
  - EOSINOPHILIC PNEUMONIA [None]
  - CELLULITIS [None]
  - GASTRIC ULCER [None]
